FAERS Safety Report 21418172 (Version 1)
Quarter: 2022Q4

REPORT INFORMATION
  Report Type: Spontaneous
  Country: FR (occurrence: FR)
  Receive Date: 20221006
  Receipt Date: 20221006
  Transmission Date: 20230112
  Serious: Yes (Hospitalization)
  Sender: FDA-Public Use
  Company Number: None

PATIENT
  Age: 74 Year
  Sex: Female
  Weight: 94.5 kg

DRUGS (2)
  1. LENVIMA [Suspect]
     Active Substance: LENVATINIB
     Indication: Thyroid cancer
     Route: 048
     Dates: start: 20220330, end: 20220504
  2. LEVOTHYROXINE [Concomitant]
     Active Substance: LEVOTHYROXINE
     Indication: Thyroidectomy
     Route: 048

REACTIONS (7)
  - Pulmonary embolism [Recovering/Resolving]
  - Back pain [Recovering/Resolving]
  - Thrombocytopenia [Recovered/Resolved]
  - Decreased appetite [Recovering/Resolving]
  - Lymphopenia [Recovered/Resolved]
  - Asthenia [Recovering/Resolving]
  - Vomiting [Recovering/Resolving]

NARRATIVE: CASE EVENT DATE: 20220401
